FAERS Safety Report 13968600 (Version 1)
Quarter: 2017Q3

REPORT INFORMATION
  Report Type: Spontaneous
  Country: US (occurrence: US)
  Receive Date: 20170914
  Receipt Date: 20170914
  Transmission Date: 20171128
  Serious: No
  Sender: FDA-Public Use
  Company Number: US-ASTELLAS-2017US027401

PATIENT
  Sex: Male

DRUGS (1)
  1. XTANDI [Suspect]
     Active Substance: ENZALUTAMIDE
     Indication: PROSTATE CANCER
     Route: 048
     Dates: start: 20170606

REACTIONS (5)
  - Rhinorrhoea [Unknown]
  - Sputum discoloured [Unknown]
  - Drug dose omission [Recovered/Resolved]
  - Upper-airway cough syndrome [Unknown]
  - Fatigue [Unknown]
